FAERS Safety Report 19072968 (Version 1)
Quarter: 2021Q1

REPORT INFORMATION
  Report Type: Report from Study
  Country: None (occurrence: BR)
  Receive Date: 20210330
  Receipt Date: 20210330
  Transmission Date: 20210420
  Serious: Yes (Hospitalization, Other)
  Sender: FDA-Public Use
  Company Number: BR-ABBVIE-21K-020-3830786-00

PATIENT
  Age: 62 Year
  Sex: Female

DRUGS (1)
  1. SKYRIZI [Suspect]
     Active Substance: RISANKIZUMAB-RZAA
     Indication: PSORIASIS
     Dosage: UNSPECIFIC DOSE
     Route: 058
     Dates: start: 20210122, end: 2021

REACTIONS (3)
  - Infarction [Unknown]
  - Vascular graft [Unknown]
  - COVID-19 [Unknown]

NARRATIVE: CASE EVENT DATE: 2021
